FAERS Safety Report 23899178 (Version 8)
Quarter: 2025Q4

REPORT INFORMATION
  Report Type: Spontaneous
  Country: EU (occurrence: EU)
  Receive Date: 20240526
  Receipt Date: 20251120
  Transmission Date: 20260118
  Serious: Yes (Death, Hospitalization, Other)
  Sender: AUROBINDO
  Company Number: EU-002147023-NVSC2024FR039719

PATIENT
  Sex: Female

DRUGS (14)
  1. FULVESTRANT [Suspect]
     Active Substance: FULVESTRANT
     Indication: Product used for unknown indication
     Dosage: UNK
     Route: 065
  2. KISQALI [Suspect]
     Active Substance: RIBOCICLIB SUCCINATE
     Indication: Breast cancer metastatic
     Dosage: 600 MILLIGRAM, ONCE A DAY (600 MG, QD)
     Dates: start: 20240122, end: 20240126
  3. KISQALI [Suspect]
     Active Substance: RIBOCICLIB SUCCINATE
     Indication: Hormone receptor positive HER2 negative breast cancer
     Dosage: 400 MILLIGRAM, ONCE A DAY (400 MG, QD)
     Dates: start: 20240126, end: 20240128
  4. KISQALI [Suspect]
     Active Substance: RIBOCICLIB SUCCINATE
     Dosage: 600 MILLIGRAM, ONCE A DAY (600 MG, QD)
     Dates: start: 20240129
  5. KISQALI [Suspect]
     Active Substance: RIBOCICLIB SUCCINATE
     Dosage: 600 MILLIGRAM, ONCE A DAY (600 MG, QD)
     Dates: start: 20240301, end: 20240308
  6. KISQALI [Suspect]
     Active Substance: RIBOCICLIB SUCCINATE
     Dosage: 600 MILLIGRAM, ONCE A DAY (600 MG, QD)
     Dates: start: 20240205, end: 20240215
  7. KISQALI [Suspect]
     Active Substance: RIBOCICLIB SUCCINATE
     Dosage: 400 MILLIGRAM, ONCE A DAY (400 MG, QD)
     Dates: start: 20240202, end: 20240204
  8. RIBOCICLIB [Suspect]
     Active Substance: RIBOCICLIB
     Indication: Hormone receptor positive HER2 negative breast cancer
     Dosage: 600 MILLIGRAM, ONCE A DAY
     Dates: start: 20240112, end: 20240126
  9. RIBOCICLIB [Suspect]
     Active Substance: RIBOCICLIB
     Dosage: 400 MILLIGRAM, ONCE A DAY
     Dates: start: 20240126, end: 20240128
  10. RIBOCICLIB [Suspect]
     Active Substance: RIBOCICLIB
     Dosage: 600 MILLIGRAM, ONCE A DAY
     Dates: start: 20240129
  11. RIBOCICLIB [Suspect]
     Active Substance: RIBOCICLIB
     Dosage: 400 MILLIGRAM, ONCE A DAY
     Dates: start: 20240202, end: 20240204
  12. RIBOCICLIB [Suspect]
     Active Substance: RIBOCICLIB
     Dosage: 600 MILLIGRAM, ONCE A DAY
     Dates: start: 20240205, end: 20240215
  13. RIBOCICLIB [Suspect]
     Active Substance: RIBOCICLIB
     Dosage: 600 MILLIGRAM, ONCE A DAY
     Dates: start: 20240301, end: 20240308
  14. LEVOFLOXACIN [Concomitant]
     Active Substance: LEVOFLOXACIN
     Indication: Product used for unknown indication
     Dosage: UNK
     Route: 065

REACTIONS (23)
  - Pneumonia [Fatal]
  - Death [Fatal]
  - Metastases to bone [Fatal]
  - Hormone receptor positive HER2 negative breast cancer [Fatal]
  - Metastases to pleura [Fatal]
  - Malignant neoplasm progression [Fatal]
  - Sepsis [Fatal]
  - Pleurisy [Fatal]
  - Acute kidney injury [Recovered/Resolved]
  - General physical condition abnormal [Recovered/Resolved]
  - General physical health deterioration [Recovered/Resolved]
  - Language disorder [Recovered/Resolved]
  - Bone marrow infiltration [Unknown]
  - Cytopenia [Unknown]
  - Pancytopenia [Unknown]
  - Renal tubular necrosis [Unknown]
  - Ageusia [Unknown]
  - Dehydration [Unknown]
  - Decreased appetite [Unknown]
  - Gait disturbance [Unknown]
  - Weight decreased [Unknown]
  - Pain [Recovering/Resolving]
  - Hypercalcaemia [Recovered/Resolved]

NARRATIVE: CASE EVENT DATE: 20240119
